FAERS Safety Report 10214206 (Version 2)
Quarter: 2014Q2

REPORT INFORMATION
  Report Type: Spontaneous
  Country: US (occurrence: US)
  Receive Date: 20140603
  Receipt Date: 20140603
  Transmission Date: 20141212
  Serious: No
  Sender: FDA-Public Use
  Company Number: US-PFIZER INC-2014121435

PATIENT
  Age: 39 Year
  Sex: Female
  Weight: 85.71 kg

DRUGS (19)
  1. RELPAX [Suspect]
     Indication: MIGRAINE
     Dosage: 40 MG, AS NEEDED
     Route: 048
     Dates: start: 2005
  2. RELPAX [Suspect]
     Dosage: 400 MG, AS NEEDED (IN A MONTH)
     Route: 048
     Dates: end: 201401
  3. RELPAX [Suspect]
     Dosage: 320 MG, AS NEEDED (IN A MONTH)
     Route: 048
     Dates: start: 201401
  4. PERCOCET [Concomitant]
     Dosage: UNK, 4X/DAY
  5. RIBOFLAVIN [Concomitant]
     Dosage: 100 MG, 2X/DAY
  6. LISINOPRIL [Concomitant]
     Dosage: 5 MG, UNK
  7. SYNTHROID [Concomitant]
     Dosage: 50 UG, UNK
  8. ESTRADIOL [Concomitant]
     Dosage: 2 MG, UNK
  9. VITAMIN B COMPLEX [Concomitant]
     Dosage: UNK
  10. LYRICA [Concomitant]
     Dosage: 75 MG, UNK
  11. LINZESS [Concomitant]
     Dosage: 290 UG, UNK
  12. ZANAFLEX [Concomitant]
     Dosage: 5 MG, 4X/DAY
  13. XANAX [Concomitant]
     Dosage: 1 MG, 3X/DAY
  14. NUVIGIL [Concomitant]
     Dosage: 250 MG, UNK
  15. TRILEPTAL [Concomitant]
     Dosage: 300 MG, UNK
  16. FENTANYL [Concomitant]
     Dosage: 25 UG, UNK
  17. MAGNESIUM OXIDE [Concomitant]
     Dosage: 400 MG, 2X/DAY
  18. ZEFRAL [Concomitant]
     Dosage: 8 MG, DISSOLVING TABLETS (THREE TO FOUR TIMES A DAY)
     Route: 048
  19. ZEFRAL [Concomitant]
     Dosage: 8 MG, 1X/DAY
     Route: 048

REACTIONS (1)
  - Pain in extremity [Recovered/Resolved]
